FAERS Safety Report 8339656-X (Version None)
Quarter: 2012Q2

REPORT INFORMATION
  Report Type: 
  Country: None (occurrence: None)
  Receive Date: 20120507
  Receipt Date: 20120503
  Transmission Date: 20120825
  Serious: Yes (Other)
  Sender: FDA-Public Use
  Company Number: PHHY2011NL36815

PATIENT
  Sex: Male
  Weight: 77 kg

DRUGS (19)
  1. ZOMETA [Suspect]
     Indication: PROSTATE CANCER METASTATIC
     Dosage: 5 MG, EVERY 4 WEEKS
     Route: 042
     Dates: start: 20110301
  2. ZOMETA [Suspect]
     Dosage: 4 MG/5 ML,ONCE EVERY 28 DAYS
     Route: 042
     Dates: start: 20110401
  3. ZOMETA [Suspect]
     Dosage: 4 MG/5 ML,ONCE EVERY 28 DAYS
     Route: 042
     Dates: start: 20110817
  4. ZOMETA [Suspect]
     Dosage: 4 MG/5 ML,ONCE EVERY 28 DAYS
     Route: 042
     Dates: start: 20110919
  5. SLOW-K [Concomitant]
  6. ZOMETA [Suspect]
     Dosage: 4 MG/ 100 ML ONCE PER 28 DAYS
     Dates: start: 20120206
  7. ZOMETA [Suspect]
     Dosage: UNK UKN, UNK
     Route: 042
     Dates: start: 20120402, end: 20120402
  8. IBUPROFEN TABLETS [Concomitant]
  9. ZOLPIDEM TARTRATE [Concomitant]
  10. NIZORAL [Concomitant]
     Dosage: 200 MG, DAILY
     Route: 048
     Dates: start: 20110901
  11. ZOMETA [Suspect]
     Dosage: 4 MG/ 100 ML ONCE PER 28 DAYS
     Dates: start: 20120305
  12. LACTULOSE [Concomitant]
  13. PREDNISOLONE [Concomitant]
  14. ZOMETA [Suspect]
     Dosage: 4 MG/5 ML,ONCE EVERY 28 DAYS
     Route: 042
     Dates: start: 20110429
  15. ZOMETA [Suspect]
     Dosage: 4 MG/5 ML,ONCE EVERY 28 DAYS
     Route: 042
     Dates: start: 20111017
  16. ACETAMINOPHEN [Concomitant]
  17. NIZORAL [Concomitant]
     Dates: start: 20111027
  18. OMEPRAZOLE [Concomitant]
  19. ZOMETA [Suspect]
     Dosage: 4 MG/5 ML,ONCE EVERY 28 DAYS
     Route: 042
     Dates: start: 20111114

REACTIONS (12)
  - PNEUMONIA [None]
  - GENERAL PHYSICAL HEALTH DETERIORATION [None]
  - TERMINAL STATE [None]
  - INFLUENZA LIKE ILLNESS [None]
  - PROSTATIC SPECIFIC ANTIGEN INCREASED [None]
  - HAEMOGLOBIN DECREASED [None]
  - ANAEMIA [None]
  - PYREXIA [None]
  - LUNG DISORDER [None]
  - BLOOD POTASSIUM DECREASED [None]
  - WEIGHT DECREASED [None]
  - FATIGUE [None]
